FAERS Safety Report 4544682-2 (Version None)
Quarter: 2005Q1

REPORT INFORMATION
  Report Type: 
  Country: None (occurrence: None)
  Receive Date: 20050103
  Receipt Date: 20050103
  Transmission Date: 20050727
  Serious: Yes (Life-Threatening, Hospitalization)
  Sender: FDA-Public Use
  Company Number: None

PATIENT
  Age: 40 Year
  Sex: Male
  Weight: 81.6475 kg

DRUGS (1)
  1. CYMBALTA [Suspect]
     Indication: MAJOR DEPRESSION
     Dosage: 1 30 MG BID ORAL
     Route: 048
     Dates: start: 20040920, end: 20041231

REACTIONS (6)
  - ASTHENIA [None]
  - FAECES DISCOLOURED [None]
  - HEPATIC ENZYME INCREASED [None]
  - INFLAMMATION [None]
  - INFLUENZA LIKE ILLNESS [None]
  - LIVER DISORDER [None]
